FAERS Safety Report 15085047 (Version 1)
Quarter: 2018Q2

REPORT INFORMATION
  Report Type: Spontaneous
  Country: US (occurrence: US)
  Receive Date: 20180628
  Receipt Date: 20180628
  Transmission Date: 20180711
  Serious: Yes (Disabling)
  Sender: FDA-Public Use
  Company Number: US-OTSUKA-2018_013371

PATIENT
  Sex: Female

DRUGS (3)
  1. ABILIFY [Suspect]
     Active Substance: ARIPIPRAZOLE
     Indication: SCHIZOPHRENIA
     Dosage: 5 MG, QD
     Route: 065
     Dates: start: 2007
  2. ABILIFY [Suspect]
     Active Substance: ARIPIPRAZOLE
     Indication: BIPOLAR DISORDER
     Dosage: 10 MG, QD
     Route: 065
  3. ABILIFY [Suspect]
     Active Substance: ARIPIPRAZOLE
     Dosage: 15 MG, QD
     Route: 065
     Dates: end: 2017

REACTIONS (10)
  - Anxiety [Unknown]
  - Injury [Unknown]
  - Compulsive shopping [Recovered/Resolved]
  - Economic problem [Unknown]
  - Disability [Unknown]
  - Pain [Unknown]
  - Gambling disorder [Recovered/Resolved]
  - Depressed mood [Unknown]
  - Condition aggravated [Unknown]
  - Compulsive sexual behaviour [Recovered/Resolved]

NARRATIVE: CASE EVENT DATE: 2013
